FAERS Safety Report 5372428-7 (Version None)
Quarter: 2007Q2

REPORT INFORMATION
  Report Type: 
  Country: None (occurrence: None)
  Receive Date: 20070615
  Receipt Date: 20070123
  Transmission Date: 20071010
  Serious: Yes (Hospitalization)
  Sender: FDA-Public Use
  Company Number: 200710504US

PATIENT
  Age: 20 Year
  Sex: Female

DRUGS (6)
  1. LANTUS [Suspect]
     Indication: DIABETES MELLITUS INSULIN-DEPENDENT
     Dosage: 40 U
  2. CARBAMAZEPINE [Concomitant]
  3. RISPERIDONE [Concomitant]
  4. INSULIN (HUMALOG /00030501/) [Concomitant]
  5. THYROID TAB [Concomitant]
  6. OTHER MEDICATIONS [Concomitant]

REACTIONS (2)
  - HYPOGLYCAEMIA [None]
  - OVERDOSE [None]
